FAERS Safety Report 16938471 (Version 4)
Quarter: 2019Q4

REPORT INFORMATION
  Report Type: Spontaneous
  Country: VN (occurrence: VN)
  Receive Date: 20191019
  Receipt Date: 20191129
  Transmission Date: 20200122
  Serious: Yes (Death, Hospitalization, Other)
  Sender: FDA-Public Use
  Company Number: VN-B.I. PHARMACEUTICALS,INC./RIDGEFIELD-2019-BI-108258

PATIENT
  Age: 90 Year
  Sex: Female

DRUGS (1)
  1. PRADAXA [Suspect]
     Active Substance: DABIGATRAN ETEXILATE MESYLATE
     Indication: ATRIAL FIBRILLATION
     Route: 065
     Dates: end: 20191015

REACTIONS (12)
  - Subdural haematoma [Recovering/Resolving]
  - Dizziness [Recovering/Resolving]
  - Fall [Recovering/Resolving]
  - Acute kidney injury [Recovering/Resolving]
  - Pneumonia [Unknown]
  - Disease complication [Fatal]
  - Craniocerebral injury [Recovering/Resolving]
  - Subarachnoid haemorrhage [Recovering/Resolving]
  - Vomiting [Recovering/Resolving]
  - Haemorrhage [Recovering/Resolving]
  - Cerebral haemorrhage [Recovering/Resolving]
  - Skull fracture [Recovering/Resolving]

NARRATIVE: CASE EVENT DATE: 20191015
